FAERS Safety Report 15868067 (Version 1)
Quarter: 2019Q1

REPORT INFORMATION
  Report Type: Spontaneous
  Country: JP (occurrence: JP)
  Receive Date: 20190125
  Receipt Date: 20190125
  Transmission Date: 20190417
  Serious: Yes (Hospitalization)
  Sender: FDA-Public Use
  Company Number: JP-EISAI MEDICAL RESEARCH-EC-2018-049123

PATIENT
  Age: 33 Year
  Sex: Male

DRUGS (2)
  1. FYCOMPA [Suspect]
     Active Substance: PERAMPANEL
     Indication: EPILEPSY
     Route: 048
     Dates: start: 20181104, end: 20181112
  2. FYCOMPA [Suspect]
     Active Substance: PERAMPANEL
     Indication: GENERALISED TONIC-CLONIC SEIZURE

REACTIONS (1)
  - Somnolence [Recovered/Resolved]

NARRATIVE: CASE EVENT DATE: 20181112
